FAERS Safety Report 5214671-3 (Version None)
Quarter: 2006Q4

REPORT INFORMATION
  Report Type: 
  Country: None (occurrence: None)
  Receive Date: 20061108
  Receipt Date: 20060317
  Transmission Date: 20070319
  Serious: Yes (Other)
  Sender: FDA-Public Use
  Company Number: US200603005138

PATIENT
  Age: 45 Year
  Sex: Female

DRUGS (4)
  1. PROZAC [Suspect]
     Indication: DEPRESSION
     Dosage: 20 MG, ORAL
     Route: 048
     Dates: start: 20050101
  2. TRAZODONE HCL [Concomitant]
  3. TRIPTYL (AMITRIPTYLINE HYDROCHLORIDE) [Concomitant]
  4. SEROQUEL [Concomitant]

REACTIONS (1)
  - GLAUCOMA [None]
